FAERS Safety Report 14187479 (Version 1)
Quarter: 2017Q4

REPORT INFORMATION
  Report Type: Spontaneous
  Country: CA (occurrence: CA)
  Receive Date: 20171113
  Receipt Date: 20171113
  Transmission Date: 20180321
  Serious: Yes (Hospitalization, Disabling)
  Sender: FDA-Public Use
  Company Number: None

PATIENT
  Age: 67 Year
  Sex: Female
  Weight: 51.3 kg

DRUGS (9)
  1. L-GLUTAMINE /00503401/ [Concomitant]
     Active Substance: GLUTAMINE
  2. PROBIOTICS [Concomitant]
     Active Substance: PROBIOTICS NOS
  3. YEAST X [Concomitant]
  4. MULTI-VITAMIN [Concomitant]
     Active Substance: .ALPHA.-TOCOPHEROL ACETATE, DL-\ASCORBIC ACID\CYANOCOBALAMIN\FLUORIDE ION\FOLIC ACID\NIACIN\PYRIDOXINE\RIBOFLAVIN\THIAMINE\VITAMIN A\VITAMIN D
  5. ZINC OINTMENT [Concomitant]
  6. CLOFIBRATE OINTMENT [Concomitant]
  7. CLOBETASOL [Suspect]
     Active Substance: CLOBETASOL
     Indication: ECZEMA
     Route: 061
     Dates: start: 20120101
  8. ERFA THYROID MEDICATION [Concomitant]
  9. ULTRAVATE [Suspect]
     Active Substance: HALOBETASOL PROPIONATE
     Indication: ECZEMA
     Route: 061
     Dates: start: 20120101, end: 20151113

REACTIONS (7)
  - Rash [None]
  - Pain [None]
  - Erythema [None]
  - Suicidal ideation [None]
  - Pruritus [None]
  - Skin exfoliation [None]
  - Urticaria [None]

NARRATIVE: CASE EVENT DATE: 20150520
